FAERS Safety Report 8917832 (Version 1)
Quarter: 2012Q4

REPORT INFORMATION
  Report Type: 
  Country: SE (occurrence: SE)
  Receive Date: 20121120
  Receipt Date: 20121120
  Transmission Date: 20130627
  Serious: Yes (Hospitalization)
  Sender: FDA-Public Use
  Company Number: SE-PFIZER INC-2012285914

PATIENT
  Age: 62 Year
  Sex: Female
  Weight: 71 kg

DRUGS (3)
  1. GENOTROPIN [Suspect]
     Dosage: 0.5 mg, 1x/day,7 injections/week
     Route: 058
     Dates: start: 20090101
  2. CABASER [Concomitant]
     Indication: HYPERPROLACTINEMIA
     Dosage: UNK
     Dates: start: 20090101
  3. LEVAXIN [Concomitant]
     Indication: HYPOTHYROIDISM
     Dosage: UNK
     Dates: start: 20090101

REACTIONS (1)
  - Foot deformity [Unknown]
